FAERS Safety Report 14288171 (Version 5)
Quarter: 2018Q3

REPORT INFORMATION
  Report Type: Report from Study
  Country: DE (occurrence: DE)
  Receive Date: 20171214
  Receipt Date: 20180815
  Transmission Date: 20181010
  Serious: Yes (Other)
  Sender: FDA-Public Use
  Company Number: DE-TEVA-2017-DE-830766

PATIENT
  Sex: Female
  Weight: 74 kg

DRUGS (61)
  1. CARFILZOMIB [Suspect]
     Active Substance: CARFILZOMIB
     Indication: PLASMA CELL MYELOMA
     Route: 042
     Dates: start: 20171102, end: 20171103
  2. CARFILZOMIB [Suspect]
     Active Substance: CARFILZOMIB
     Route: 042
     Dates: start: 20170724, end: 20170725
  3. CARFILZOMIB [Suspect]
     Active Substance: CARFILZOMIB
     Route: 042
     Dates: start: 20170626, end: 20170627
  4. DEXAMETHASONE. [Suspect]
     Active Substance: DEXAMETHASONE
     Route: 065
     Dates: start: 20170807, end: 20170807
  5. DEXAMETHASONE. [Suspect]
     Active Substance: DEXAMETHASONE
     Route: 065
     Dates: start: 20170821, end: 20170821
  6. DEXAMETHASONE. [Suspect]
     Active Substance: DEXAMETHASONE
     Route: 065
     Dates: start: 20171120, end: 20171120
  7. DEXAMETHASONE. [Suspect]
     Active Substance: DEXAMETHASONE
     Route: 065
     Dates: start: 20171127, end: 20171127
  8. DEXAMETHASONE. [Suspect]
     Active Substance: DEXAMETHASONE
     Route: 065
     Dates: start: 20171211, end: 20171211
  9. DEXAMETHASONE. [Suspect]
     Active Substance: DEXAMETHASONE
     Route: 065
     Dates: start: 20171204, end: 20171204
  10. LENALIDOMIDE [Suspect]
     Active Substance: LENALIDOMIDE
     Route: 065
     Dates: start: 20171211
  11. PAMIFOS [Concomitant]
     Active Substance: PAMIDRONATE DISODIUM
     Indication: PROPHYLAXIS
     Dates: start: 20150611
  12. CARFILZOMIB [Suspect]
     Active Substance: CARFILZOMIB
     Route: 042
     Dates: start: 20170731, end: 20170801
  13. CARFILZOMIB [Suspect]
     Active Substance: CARFILZOMIB
     Route: 042
     Dates: start: 20171120, end: 20171120
  14. CARFILZOMIB [Suspect]
     Active Substance: CARFILZOMIB
     Route: 042
     Dates: start: 20171211, end: 20171212
  15. DEXAMETHASONE. [Suspect]
     Active Substance: DEXAMETHASONE
     Route: 065
     Dates: start: 20170724, end: 20170724
  16. DEXAMETHASONE. [Suspect]
     Active Substance: DEXAMETHASONE
     Route: 065
     Dates: start: 20170703, end: 20170703
  17. CARFILZOMIB [Suspect]
     Active Substance: CARFILZOMIB
     Route: 042
     Dates: start: 20171127, end: 20171128
  18. DEXAMETHASONE. [Suspect]
     Active Substance: DEXAMETHASONE
     Route: 065
     Dates: start: 20171030, end: 20171030
  19. DEXAMETHASONE. [Suspect]
     Active Substance: DEXAMETHASONE
     Route: 065
     Dates: start: 20171009, end: 20171009
  20. DEXAMETHASONE. [Suspect]
     Active Substance: DEXAMETHASONE
     Route: 065
     Dates: start: 20171016, end: 20171016
  21. DEXAMETHASONE. [Suspect]
     Active Substance: DEXAMETHASONE
     Route: 065
     Dates: start: 20170814, end: 20170814
  22. DEXAMETHASONE. [Suspect]
     Active Substance: DEXAMETHASONE
     Route: 065
     Dates: start: 20170925, end: 20170925
  23. DEXAMETHASONE. [Suspect]
     Active Substance: DEXAMETHASONE
     Route: 065
     Dates: start: 20170731, end: 20170731
  24. LENALIDOMIDE [Suspect]
     Active Substance: LENALIDOMIDE
     Route: 065
     Dates: start: 20171113, end: 20171230
  25. ACICLOVIR [Concomitant]
     Active Substance: ACYCLOVIR
     Indication: PROPHYLAXIS
     Dosage: 800 MILLIGRAM DAILY;
     Dates: start: 20150611
  26. CARFILZOMIB [Suspect]
     Active Substance: CARFILZOMIB
     Route: 042
     Dates: start: 20171113, end: 20171114
  27. DEXAMETHASONE. [Suspect]
     Active Substance: DEXAMETHASONE
     Route: 065
     Dates: start: 20170918, end: 20170918
  28. DEXAMETHASONE. [Suspect]
     Active Substance: DEXAMETHASONE
     Route: 065
     Dates: start: 20170717, end: 20170717
  29. DEXAMETHASONE. [Suspect]
     Active Substance: DEXAMETHASONE
     Route: 065
     Dates: start: 20170904, end: 20170904
  30. LENALIDOMIDE [Suspect]
     Active Substance: LENALIDOMIDE
     Indication: PLASMA CELL MYELOMA
     Route: 065
     Dates: start: 20170821, end: 20170910
  31. LENALIDOMIDE [Suspect]
     Active Substance: LENALIDOMIDE
     Route: 065
     Dates: start: 20170626, end: 20170716
  32. BIFITERAL [Concomitant]
     Active Substance: LACTULOSE
     Indication: PROPHYLAXIS
     Dosage: AS NECESSARY
     Dates: start: 20150622
  33. IBUPROFEN. [Concomitant]
     Active Substance: IBUPROFEN
     Indication: PROPHYLAXIS
     Dosage: AS NECESSARY
     Dates: start: 20150611
  34. CARFILZOMIB [Suspect]
     Active Substance: CARFILZOMIB
     Route: 042
     Dates: start: 20171023, end: 20171024
  35. CARFILZOMIB [Suspect]
     Active Substance: CARFILZOMIB
     Route: 042
     Dates: start: 20170710, end: 20170711
  36. DEXAMETHASONE. [Suspect]
     Active Substance: DEXAMETHASONE
     Indication: PLASMA CELL MYELOMA
     Route: 065
     Dates: start: 20171106, end: 20171106
  37. DEXAMETHASONE. [Suspect]
     Active Substance: DEXAMETHASONE
     Route: 065
     Dates: start: 20171023, end: 20171023
  38. DEXAMETHASONE. [Suspect]
     Active Substance: DEXAMETHASONE
     Route: 065
     Dates: start: 20170626, end: 20170626
  39. PRAXIS [Concomitant]
     Indication: PROPHYLAXIS
     Dosage: 40 MILLIGRAM DAILY;
     Dates: start: 20150611
  40. CARFILZOMIB [Suspect]
     Active Substance: CARFILZOMIB
     Route: 042
     Dates: start: 20171113
  41. CARFILZOMIB [Suspect]
     Active Substance: CARFILZOMIB
     Route: 042
     Dates: start: 20171004, end: 20171005
  42. CARFILZOMIB [Suspect]
     Active Substance: CARFILZOMIB
     Route: 042
     Dates: start: 20170828, end: 20170829
  43. DEXAMETHASONE. [Suspect]
     Active Substance: DEXAMETHASONE
     Route: 065
     Dates: start: 20170710, end: 20170710
  44. DEXAMETHASONE. [Suspect]
     Active Substance: DEXAMETHASONE
     Route: 065
     Dates: start: 20171113, end: 20171113
  45. DEXAMETHASONE. [Suspect]
     Active Substance: DEXAMETHASONE
     Route: 065
     Dates: start: 20170911, end: 20170911
  46. LENALIDOMIDE [Suspect]
     Active Substance: LENALIDOMIDE
     Route: 065
     Dates: start: 20171016, end: 20171105
  47. CLEXANE [Concomitant]
     Active Substance: ENOXAPARIN SODIUM
     Indication: PROPHYLAXIS
     Dates: start: 20150611
  48. CARFILZOMIB [Suspect]
     Active Substance: CARFILZOMIB
     Route: 042
     Dates: start: 20171016, end: 20171017
  49. CARFILZOMIB [Suspect]
     Active Substance: CARFILZOMIB
     Route: 042
     Dates: start: 20170703, end: 20170704
  50. CARFILZOMIB [Suspect]
     Active Substance: CARFILZOMIB
     Route: 042
     Dates: start: 20170821, end: 20170822
  51. CARFILZOMIB [Suspect]
     Active Substance: CARFILZOMIB
     Route: 042
     Dates: start: 20171218, end: 20171219
  52. DEXAMETHASONE. [Suspect]
     Active Substance: DEXAMETHASONE
     Route: 065
     Dates: start: 20170828, end: 20170828
  53. LENALIDOMIDE [Suspect]
     Active Substance: LENALIDOMIDE
     Route: 065
     Dates: start: 20170918, end: 20171008
  54. COTRIM [Concomitant]
     Active Substance: SULFAMETHOXAZOLE\TRIMETHOPRIM
     Indication: PROPHYLAXIS
     Dosage: 342.8571 MILLIGRAM DAILY;
     Dates: start: 20150611
  55. CARFILZOMIB [Suspect]
     Active Substance: CARFILZOMIB
     Route: 042
     Dates: start: 20170904, end: 20170905
  56. CARFILZOMIB [Suspect]
     Active Substance: CARFILZOMIB
     Route: 042
     Dates: start: 20170807, end: 20170808
  57. CARFILZOMIB [Suspect]
     Active Substance: CARFILZOMIB
     Route: 042
     Dates: start: 20170918, end: 20170919
  58. CARFILZOMIB [Suspect]
     Active Substance: CARFILZOMIB
     Route: 042
     Dates: start: 20170925, end: 20170926
  59. DEXAMETHASONE. [Suspect]
     Active Substance: DEXAMETHASONE
     Route: 065
     Dates: start: 20171004, end: 20171004
  60. DEXAMETHASONE. [Suspect]
     Active Substance: DEXAMETHASONE
     Route: 065
     Dates: start: 20171218, end: 20171218
  61. LENALIDOMIDE [Suspect]
     Active Substance: LENALIDOMIDE
     Route: 065
     Dates: start: 20170724, end: 20170813

REACTIONS (2)
  - Leukopenia [Not Recovered/Not Resolved]
  - Thrombocytopenia [Recovered/Resolved]

NARRATIVE: CASE EVENT DATE: 20170628
